FAERS Safety Report 23181783 (Version 1)
Quarter: 2023Q4

REPORT INFORMATION
  Report Type: Spontaneous
  Country: US (occurrence: None)
  Receive Date: 20231113
  Receipt Date: 20231113
  Transmission Date: 20240110
  Serious: Yes (Hospitalization)
  Sender: FDA-Public Use
  Company Number: None

PATIENT
  Sex: Male

DRUGS (21)
  1. MYCOPHENOLIC ACID [Suspect]
     Active Substance: MYCOPHENOLIC ACID
     Indication: Heart transplant
     Dosage: TAKE 2 CAPSULES (500 MG TOTAL) BY MOUTH 2 TIMES A DAY. TO BE TAKEN 12 HOURS APART.?
     Route: 048
     Dates: start: 20160407
  2. AMLODIPINE [Concomitant]
     Active Substance: AMLODIPINE BESYLATE
  3. ASPIRIN [Concomitant]
     Active Substance: ASPIRIN
  4. CALCIUM + MAG [Concomitant]
  5. DILTIAZEM [Concomitant]
     Active Substance: DILTIAZEM
  6. DOXAZOSIN [Concomitant]
     Active Substance: DOXAZOSIN MESYLATE
  7. FOSAMAX [Concomitant]
     Active Substance: ALENDRONATE SODIUM
  8. IRON [Concomitant]
     Active Substance: IRON
  9. JANUVIA [Concomitant]
     Active Substance: SITAGLIPTIN PHOSPHATE
  10. LISINOPRIL [Concomitant]
     Active Substance: LISINOPRIL
  11. MAGN OXIDE [Concomitant]
  12. MYCOPHENOLATE MOFETIL [Concomitant]
     Active Substance: MYCOPHENOLATE MOFETIL
  13. OSCAL 500/TAB 200 D3 [Concomitant]
  14. POTASSIUM [Concomitant]
     Active Substance: POTASSIUM
  15. PRAVACHOL [Concomitant]
     Active Substance: PRAVASTATIN SODIUM
  16. PRILOSEC [Concomitant]
     Active Substance: OMEPRAZOLE MAGNESIUM
  17. PROGRAF [Concomitant]
     Active Substance: TACROLIMUS
  18. MAGNESIUM CHLORIDE [Concomitant]
     Active Substance: MAGNESIUM CHLORIDE
  19. SYNTHROID [Concomitant]
     Active Substance: LEVOTHYROXINE SODIUM
  20. TACROLIMUS [Concomitant]
     Active Substance: TACROLIMUS
  21. VITAMIN D [Concomitant]
     Active Substance: VITAMIN D NOS

REACTIONS (2)
  - Infection [None]
  - Dialysis [None]
